FAERS Safety Report 4760811-X (Version None)
Quarter: 2005Q3

REPORT INFORMATION
  Report Type: 
  Country: None (occurrence: None)
  Receive Date: 20050826
  Receipt Date: 20041118
  Transmission Date: 20060218
  Serious: Yes (Other)
  Sender: FDA-Public Use
  Company Number: USA-2004-0016850

PATIENT
  Age: 39 Year
  Sex: Female
  Weight: 99.8 kg

DRUGS (5)
  1. OXYCONTIN [Suspect]
     Indication: PAIN
     Dosage: 400 MG, Q8H,
  2. ACETAMINOPHEN AND OXYCODONE HCL [Suspect]
  3. NEURONTIN [Concomitant]
  4. TOPAMAX [Concomitant]
  5. LORAZEPAM [Concomitant]

REACTIONS (5)
  - DRUG ABUSER [None]
  - GAIT DISTURBANCE [None]
  - PAIN [None]
  - ROAD TRAFFIC ACCIDENT [None]
  - SOMNOLENCE [None]
